FAERS Safety Report 21282861 (Version 1)
Quarter: 2022Q3

REPORT INFORMATION
  Report Type: Report from Study
  Country: JP (occurrence: JP)
  Receive Date: 20220901
  Receipt Date: 20220901
  Transmission Date: 20221026
  Serious: Yes (Other)
  Sender: FDA-Public Use
  Company Number: JP-MYLANLABS-2022M1089913

PATIENT
  Age: 86 Year
  Sex: Female

DRUGS (3)
  1. MAGNESIUM OXIDE [Interacting]
     Active Substance: MAGNESIUM OXIDE
     Indication: Laxative supportive care
     Dosage: SHE RECEIVED A SINGLE TABLET CONTAINING 250 MG OF MGO CONCOMITANTLY EVERY 4 H VIA A PEG TUBE AS A SU
     Route: 065
  2. CARBIDOPA\LEVODOPA [Interacting]
     Active Substance: CARBIDOPA\LEVODOPA
     Indication: Parkinson^s disease
     Dosage: SHE RECEIVED A SINGLE LEVODOPA/CARBIDOPA TABLET CONTAINING 100 MG OF LEVODOPA AND 10 MG OF CARBIDOPA
     Route: 065
  3. ASCORBIC ACID [Concomitant]
     Active Substance: ASCORBIC ACID
     Indication: Supplementation therapy
     Route: 065

REACTIONS (3)
  - Drug metabolising enzyme test abnormal [Unknown]
  - Drug interaction [Unknown]
  - Wrong technique in product usage process [Unknown]
